FAERS Safety Report 25114808 (Version 1)
Quarter: 2025Q1

REPORT INFORMATION
  Report Type: Spontaneous
  Country: IR (occurrence: IR)
  Receive Date: 20250324
  Receipt Date: 20250324
  Transmission Date: 20250409
  Serious: Yes (Hospitalization)
  Sender: JUBILANT
  Company Number: IR-JUBILANT CADISTA PHARMACEUTICALS-2025JUB00029

PATIENT
  Age: 16 Year
  Sex: Male
  Weight: 120 kg

DRUGS (8)
  1. CARBAMAZEPINE [Suspect]
     Active Substance: CARBAMAZEPINE
     Indication: Bipolar disorder
     Dosage: 200 MG, 2X/DAY
     Dates: start: 202310, end: 202409
  2. CARBAMAZEPINE [Suspect]
     Active Substance: CARBAMAZEPINE
     Indication: Epilepsy
  3. VALPROATE SODIUM [Suspect]
     Active Substance: VALPROATE SODIUM
     Indication: Bipolar disorder
     Dates: start: 202310, end: 202409
  4. VALPROATE SODIUM [Suspect]
     Active Substance: VALPROATE SODIUM
     Indication: Epilepsy
  5. LITHIUM [Concomitant]
     Active Substance: LITHIUM
     Dosage: 300 MG, 3X/DAY
     Dates: start: 202310
  6. HALOPERIDOL [Concomitant]
     Active Substance: HALOPERIDOL
     Dosage: 0.5 MG, 2X/DAY
     Dates: start: 202310
  7. BIPERIDEN [Concomitant]
     Active Substance: BIPERIDEN
     Dosage: 2 MG, 2X/DAY
     Dates: start: 202310
  8. TOPIRAMATE [Concomitant]
     Active Substance: TOPIRAMATE
     Dosage: 200 MG, 1X/DAY IN TWO DOSES
     Dates: start: 202310

REACTIONS (1)
  - Cushing^s syndrome [Recovered/Resolved]
